FAERS Safety Report 6081683-X (Version None)
Quarter: 2009Q1

REPORT INFORMATION
  Report Type: 
  Country: None (occurrence: None)
  Receive Date: 20090213
  Receipt Date: 20090130
  Transmission Date: 20090719
  Serious: Yes (Hospitalization)
  Sender: FDA-Public Use
  Company Number: 000315

PATIENT
  Sex: Male

DRUGS (1)
  1. PROSTAVASIN /00501501/ (PROSTAVASIN) [Suspect]
     Indication: PERIPHERAL ARTERIAL OCCLUSIVE DISEASE
     Dosage: (INTRAVENOUS (NOT OTHERWISE SPECIFIED)
     Route: 042
     Dates: start: 20090101

REACTIONS (3)
  - APPLICATION SITE DISCOLOURATION [None]
  - APPLICATION SITE OEDEMA [None]
  - INFUSION SITE EXTRAVASATION [None]
